FAERS Safety Report 23268899 (Version 1)
Quarter: 2023Q4

REPORT INFORMATION
  Report Type: Spontaneous
  Country: US (occurrence: US)
  Receive Date: 20231206
  Receipt Date: 20231206
  Transmission Date: 20240109
  Serious: No
  Sender: FDA-Public Use
  Company Number: US-BAUSCH-BL-2023-017782

PATIENT
  Sex: Female

DRUGS (1)
  1. DILTIAZEM HYDROCHLORIDE [Suspect]
     Active Substance: DILTIAZEM HYDROCHLORIDE
     Indication: Supraventricular tachycardia
     Route: 065

REACTIONS (4)
  - Feeling abnormal [Unknown]
  - Drug intolerance [Unknown]
  - Blood pressure fluctuation [Unknown]
  - Drug ineffective [Unknown]
